FAERS Safety Report 19050875 (Version 1)
Quarter: 2021Q1

REPORT INFORMATION
  Report Type: Spontaneous
  Country: US (occurrence: US)
  Receive Date: 20210323
  Receipt Date: 20210323
  Transmission Date: 20210420
  Serious: Yes (Other)
  Sender: FDA-Public Use
  Company Number: None

PATIENT
  Age: 65 Year
  Sex: Female

DRUGS (1)
  1. VOSEVI [Suspect]
     Active Substance: SOFOSBUVIR\VELPATASVIR\VOXILAPREVIR
     Dosage: ?          OTHER DOSE:400?100?100;?
     Route: 048
     Dates: start: 202103

REACTIONS (2)
  - Cardiac flutter [None]
  - Headache [None]

NARRATIVE: CASE EVENT DATE: 20210323
